FAERS Safety Report 21345600 (Version 43)
Quarter: 2025Q3

REPORT INFORMATION
  Report Type: Report from Study
  Country: US (occurrence: US)
  Receive Date: 20220916
  Receipt Date: 20250821
  Transmission Date: 20251020
  Serious: Yes (Other)
  Sender: TAKEDA
  Company Number: US-TAKEDA-US202016184

PATIENT
  Age: 47 Year
  Sex: Female

DRUGS (30)
  1. LANADELUMAB [Suspect]
     Active Substance: LANADELUMAB
     Indication: Hereditary angioedema
  2. LANADELUMAB [Suspect]
     Active Substance: LANADELUMAB
     Indication: Female reproductive tract disorder
  3. LANADELUMAB [Suspect]
     Active Substance: LANADELUMAB
     Indication: Menstrual disorder
     Dosage: 300 MILLIGRAM, Q2WEEKS
     Dates: start: 20181116
  4. LANADELUMAB [Suspect]
     Active Substance: LANADELUMAB
     Indication: Anaemia
     Dosage: 300 MILLIGRAM, Q2WEEKS
     Dates: start: 20181117
  5. LANADELUMAB [Suspect]
     Active Substance: LANADELUMAB
     Indication: Immune system disorder
  6. LANADELUMAB [Suspect]
     Active Substance: LANADELUMAB
     Dosage: 300 MILLIGRAM, Q2WEEKS
     Dates: start: 201811
  7. LANADELUMAB [Suspect]
     Active Substance: LANADELUMAB
  8. LANADELUMAB [Suspect]
     Active Substance: LANADELUMAB
     Dosage: 300 MILLIGRAM, Q2WEEKS
     Dates: start: 201909
  9. LANADELUMAB [Suspect]
     Active Substance: LANADELUMAB
     Dosage: 300 MILLIGRAM, Q2WEEKS
     Dates: start: 20191016
  10. LANADELUMAB [Suspect]
     Active Substance: LANADELUMAB
     Dosage: 300 MILLIGRAM, Q2WEEKS
     Dates: start: 20200206
  11. LANADELUMAB [Suspect]
     Active Substance: LANADELUMAB
     Dosage: 2 MILLILITER, Q2WEEKS
     Dates: start: 20200207
  12. LANADELUMAB [Suspect]
     Active Substance: LANADELUMAB
  13. LANADELUMAB [Suspect]
     Active Substance: LANADELUMAB
     Dosage: 300 MILLIGRAM, Q2WEEKS
     Dates: start: 202006
  14. LANADELUMAB [Suspect]
     Active Substance: LANADELUMAB
  15. LANADELUMAB [Suspect]
     Active Substance: LANADELUMAB
     Dosage: 300 MILLIGRAM, Q2WEEKS
     Dates: start: 20210908
  16. LANADELUMAB [Suspect]
     Active Substance: LANADELUMAB
  17. LANADELUMAB [Suspect]
     Active Substance: LANADELUMAB
     Dosage: 300 MILLIGRAM, Q2WEEKS
     Dates: start: 20220915
  18. LANADELUMAB [Suspect]
     Active Substance: LANADELUMAB
     Dosage: 300 MILLIGRAM, Q2WEEKS
     Dates: start: 202209
  19. LANADELUMAB [Suspect]
     Active Substance: LANADELUMAB
     Dosage: 300 MILLIGRAM, Q2WEEKS
  20. LANADELUMAB [Suspect]
     Active Substance: LANADELUMAB
     Dosage: 300 MILLIGRAM/ 2ML, Q2WEEKS
  21. KALBITOR [Suspect]
     Active Substance: ECALLANTIDE
     Indication: Hereditary angioedema
  22. KALBITOR [Suspect]
     Active Substance: ECALLANTIDE
     Indication: Immune system disorder
  23. KALBITOR [Suspect]
     Active Substance: ECALLANTIDE
     Indication: Menstrual disorder
  24. KALBITOR [Suspect]
     Active Substance: ECALLANTIDE
     Indication: Anaemia
  25. KALBITOR [Suspect]
     Active Substance: ECALLANTIDE
     Indication: Female reproductive tract disorder
  26. KALBITOR [Suspect]
     Active Substance: ECALLANTIDE
  27. RUCONEST [Concomitant]
     Active Substance: CONESTAT ALFA
  28. SODIUM CHLORIDE [Concomitant]
     Active Substance: SODIUM CHLORIDE
  29. STERILE WATER [Concomitant]
     Active Substance: WATER
  30. HEPARIN [Concomitant]
     Active Substance: HEPARIN SODIUM

REACTIONS (3)
  - Nephrolithiasis [Unknown]
  - Inappropriate schedule of product administration [Unknown]
  - Hereditary angioedema [Recovered/Resolved]

NARRATIVE: CASE EVENT DATE: 20220421
